FAERS Safety Report 11884064 (Version 1)
Quarter: 2016Q1

REPORT INFORMATION
  Report Type: Spontaneous
  Country: US (occurrence: US)
  Receive Date: 20160102
  Receipt Date: 20160102
  Transmission Date: 20160526
  Serious: Yes (Other)
  Sender: FDA-Public Use
  Company Number: US-BRISTOL-MYERS SQUIBB COMPANY-BMS-2015-092720

PATIENT
  Sex: Female
  Weight: 95.24 kg

DRUGS (1)
  1. COUMADIN [Suspect]
     Active Substance: WARFARIN SODIUM
     Indication: THROMBOSIS
     Dosage: UNK UNK, BID
     Route: 065

REACTIONS (4)
  - Drug ineffective [Unknown]
  - Thrombosis [Unknown]
  - Weight fluctuation [Unknown]
  - Dyspnoea [Unknown]
